FAERS Safety Report 7108630-3 (Version None)
Quarter: 2010Q4

REPORT INFORMATION
  Report Type: 
  Country: None (occurrence: None)
  Receive Date: 20101117
  Receipt Date: 20101102
  Transmission Date: 20110411
  Serious: Yes (Other)
  Sender: FDA-Public Use
  Company Number: KR-ROCHE-734409

PATIENT
  Sex: Female
  Weight: 54 kg

DRUGS (8)
  1. TOCILIZUMAB [Suspect]
     Indication: RHEUMATOID ARTHRITIS
     Route: 042
     Dates: start: 20100415, end: 20100930
  2. BLINDED TOCILIZUMAB [Suspect]
     Indication: RHEUMATOID ARTHRITIS
     Route: 042
     Dates: start: 20091027, end: 20100316
  3. METHOTREXATE [Suspect]
     Indication: RHEUMATOID ARTHRITIS
     Route: 048
     Dates: start: 20070814
  4. HYDROXYCHLOROQUINE [Concomitant]
     Route: 048
     Dates: start: 20090609
  5. DILTIAZEM [Concomitant]
     Route: 048
     Dates: start: 20080219
  6. FOLIC ACID [Concomitant]
     Route: 048
     Dates: start: 20050313
  7. TRIAMCINOLONE [Concomitant]
     Route: 048
     Dates: start: 20100706
  8. REBAMIPIDE [Concomitant]
     Route: 048
     Dates: start: 20100706

REACTIONS (3)
  - ABORTION SPONTANEOUS [None]
  - DRUG EXPOSURE DURING PREGNANCY [None]
  - PREGNANCY [None]
